FAERS Safety Report 9121555 (Version 1)
Quarter: 2013Q1

REPORT INFORMATION
  Report Type: Spontaneous
  Country: US (occurrence: US)
  Receive Date: 20130227
  Receipt Date: 20130227
  Transmission Date: 20140127
  Serious: Yes (Hospitalization)
  Sender: FDA-Public Use
  Company Number: US-009507513-1302USA010885

PATIENT
  Age: 58 Year
  Sex: Male
  Weight: 97.96 kg

DRUGS (3)
  1. RIBAVIRIN [Suspect]
     Indication: HEPATITIS C
     Dosage: 1200 MG, QD
     Dates: start: 20120113, end: 20121214
  2. PEGASYS [Suspect]
     Indication: HEPATITIS C
     Dosage: 180 MICROGRAM, QD
     Route: 058
     Dates: start: 20120113, end: 20121214
  3. TELAPREVIR [Suspect]
     Indication: HEPATITIS C
     Dosage: 1125 MG, BID
     Dates: start: 20120113, end: 20120406

REACTIONS (2)
  - Anxiety [Unknown]
  - Suicidal ideation [Unknown]
